FAERS Safety Report 16928492 (Version 3)
Quarter: 2020Q1

REPORT INFORMATION
  Report Type: Spontaneous
  Country: FR (occurrence: FR)
  Receive Date: 20191017
  Receipt Date: 20200206
  Transmission Date: 20200409
  Serious: Yes (Disabling, Other)
  Sender: FDA-Public Use
  Company Number: FR-HBP-2019FR019667

PATIENT
  Age: 87 Year
  Sex: Male

DRUGS (1)
  1. LEDAGA [Suspect]
     Active Substance: MECHLORETHAMINE HYDROCHLORIDE
     Indication: PRODUCT USED FOR UNKNOWN INDICATION
     Dosage: 1 APPLICATION PER DAY
     Route: 061
     Dates: start: 20190916, end: 20191007

REACTIONS (5)
  - Application site injury [Recovering/Resolving]
  - Application site pain [Recovering/Resolving]
  - Application site wound [Recovered/Resolved]
  - Application site haemorrhage [Recovering/Resolving]
  - Product use complaint [Unknown]

NARRATIVE: CASE EVENT DATE: 20190920
